FAERS Safety Report 11397595 (Version 2)
Quarter: 2015Q4

REPORT INFORMATION
  Report Type: Spontaneous
  Country: US (occurrence: US)
  Receive Date: 20150819
  Receipt Date: 20151006
  Transmission Date: 20160304
  Serious: No
  Sender: FDA-Public Use
  Company Number: ALCN2015US005206

PATIENT
  Sex: Male

DRUGS (1)
  1. GENTEAL GEL [Suspect]
     Active Substance: CARBOXYMETHYLCELLULOSE SODIUM\HYPROMELLOSES
     Indication: DRY EYE
     Dosage: UNK
     Route: 047
     Dates: start: 20150719, end: 20150818

REACTIONS (1)
  - Eye irritation [Recovered/Resolved]

NARRATIVE: CASE EVENT DATE: 20150818
